FAERS Safety Report 11002507 (Version 1)
Quarter: 2015Q2

REPORT INFORMATION
  Report Type: Spontaneous
  Country: US (occurrence: US)
  Receive Date: 20150408
  Receipt Date: 20150408
  Transmission Date: 20150821
  Serious: Yes (Hospitalization, Other)
  Sender: FDA-Public Use
  Company Number: US-GLAXOSMITHKLINE-US2015GSK046109

PATIENT
  Sex: Female

DRUGS (1)
  1. LAMICTAL [Suspect]
     Active Substance: LAMOTRIGINE
     Indication: MIGRAINE
     Dosage: UNK, U
     Route: 065
     Dates: start: 201411

REACTIONS (13)
  - Rash generalised [Unknown]
  - Stevens-Johnson syndrome [Unknown]
  - Skin exfoliation [Not Recovered/Not Resolved]
  - Mouth ulceration [Unknown]
  - Lip ulceration [Unknown]
  - Erythema [Not Recovered/Not Resolved]
  - Staphylococcal infection [Unknown]
  - Product use issue [Unknown]
  - Pharyngeal oedema [Unknown]
  - Haemophilus infection [Unknown]
  - Mouth swelling [Unknown]
  - Dyspnoea [Unknown]
  - Laryngitis [Unknown]

NARRATIVE: CASE EVENT DATE: 201411
